FAERS Safety Report 10639179 (Version 1)
Quarter: 2014Q4

REPORT INFORMATION
  Report Type: Spontaneous
  Country: US (occurrence: None)
  Receive Date: 20141121
  Receipt Date: 20141121
  Transmission Date: 20150529
  Serious: No
  Sender: FDA-Public Use
  Company Number: 163-10004-14085161

PATIENT
  Age: 71 Year
  Sex: Female
  Weight: 66.68 kg

DRUGS (12)
  1. OTEZLA [Suspect]
     Active Substance: APREMILAST
     Indication: PSORIATIC ARTHROPATHY
     Route: 048
     Dates: start: 20140709, end: 20140714
  2. AZITHROMYCIN [Concomitant]
     Active Substance: AZITHROMYCIN ANHYDROUS
  3. RHINOCORT [Concomitant]
     Active Substance: BUDESONIDE
  4. PRILOSEC (OMEPRAZOLE) [Concomitant]
     Active Substance: OMEPRAZOLE MAGNESIUM
  5. METHOTREXATE [Concomitant]
     Active Substance: METHOTREXATE
  6. ATORVASTATIN [Concomitant]
     Active Substance: ATORVASTATIN
  7. ADVAIR (SERETIDE) [Concomitant]
  8. VITAMIN C [Concomitant]
     Active Substance: ASCORBIC ACID
  9. CHONDROITIN SULFATE (BOVINE)\GLUCOSAMINE SULFATE [Concomitant]
     Active Substance: CHONDROITIN SULFATE (BOVINE)\GLUCOSAMINE SULFATE
  10. FOLIC ACID. [Concomitant]
     Active Substance: FOLIC ACID
  11. MULTIVITAMINS [Concomitant]
     Active Substance: VITAMINS
  12. CITRACAL [Concomitant]
     Active Substance: CALCIUM CITRATE

REACTIONS (5)
  - Nausea [None]
  - Diarrhoea [None]
  - Headache [None]
  - Abdominal pain [None]
  - Muscle spasms [None]

NARRATIVE: CASE EVENT DATE: 20140714
